FAERS Safety Report 9019501 (Version 1)
Quarter: 2013Q1

REPORT INFORMATION
  Report Type: Spontaneous
  Country: US (occurrence: US)
  Receive Date: 20130118
  Receipt Date: 20130118
  Transmission Date: 20140127
  Serious: No
  Sender: FDA-Public Use
  Company Number: US-BAUSCH-2012BL000704

PATIENT
  Sex: Male

DRUGS (2)
  1. TOBRAMYCIN OPHTHALMIC SOLUTION USP 0.3% [Suspect]
     Indication: EYE INFECTION
     Route: 047
     Dates: start: 20111013, end: 20111018
  2. TOBRAMYCIN OPHTHALMIC SOLUTION USP 0.3% [Suspect]
     Route: 047
     Dates: start: 20111018, end: 20111019

REACTIONS (8)
  - Drug administration error [Recovered/Resolved]
  - Inappropriate schedule of drug administration [Recovered/Resolved]
  - Eye infection [Recovered/Resolved]
  - Condition aggravated [Recovered/Resolved]
  - Neoplasm skin [Recovered/Resolved]
  - Discomfort [Recovered/Resolved]
  - Fear [Recovered/Resolved]
  - Anxiety [Recovered/Resolved]
